FAERS Safety Report 7550462-6 (Version None)
Quarter: 2011Q2

REPORT INFORMATION
  Report Type: 
  Country: None (occurrence: None)
  Receive Date: 20110615
  Receipt Date: 20110607
  Transmission Date: 20111010
  Serious: Yes (Other)
  Sender: FDA-Public Use
  Company Number: GB-MERCK-1106GBR00040B1

PATIENT
  Age: 0 Day
  Sex: Female
  Weight: 1 kg

DRUGS (3)
  1. ISENTRESS [Suspect]
     Route: 064
  2. EFAVIRENZ [Concomitant]
     Route: 064
  3. EMTRICITABINE AND TENOFOVIR DISOPROXIL FUMARATE [Concomitant]
     Route: 064

REACTIONS (2)
  - DRUG EXPOSURE DURING PREGNANCY [None]
  - SMALL FOR DATES BABY [None]
